FAERS Safety Report 14084625 (Version 2)
Quarter: 2017Q4

REPORT INFORMATION
  Report Type: Spontaneous
  Country: JP (occurrence: JP)
  Receive Date: 20171013
  Receipt Date: 20171103
  Transmission Date: 20180321
  Serious: Yes (Hospitalization)
  Sender: FDA-Public Use
  Company Number: JP-ROCHE-2008117

PATIENT
  Age: 9 Decade
  Sex: Female

DRUGS (1)
  1. ACTEMRA [Suspect]
     Active Substance: TOCILIZUMAB
     Indication: RHEUMATOID ARTHRITIS
     Route: 058
     Dates: start: 20150205, end: 2017

REACTIONS (2)
  - Infectious pleural effusion [Unknown]
  - Pneumococcal infection [Unknown]

NARRATIVE: CASE EVENT DATE: 201709
